FAERS Safety Report 5319087-7 (Version None)
Quarter: 2007Q1

REPORT INFORMATION
  Report Type: 
  Country: None (occurrence: None)
  Receive Date: 20070202
  Receipt Date: 20060515
  Transmission Date: 20070707
  Serious: Yes (Life-Threatening)
  Sender: FDA-Public Use
  Company Number: 253362

PATIENT
  Sex: Male

DRUGS (3)
  1. NOVOLOG [Suspect]
     Indication: DIABETES MELLITUS
     Dosage: SUBCUTANEOUS
     Route: 058
  2. NOVOLIN N [Concomitant]
  3. HUMALOG /00030501/ (INSULIN) [Concomitant]

REACTIONS (1)
  - ANAPHYLACTIC REACTION [None]
